FAERS Safety Report 21347506 (Version 2)
Quarter: 2022Q3

REPORT INFORMATION
  Report Type: Report from Study
  Country: US (occurrence: US)
  Receive Date: 20220919
  Receipt Date: 20220921
  Transmission Date: 20221027
  Serious: Yes (Hospitalization)
  Sender: FDA-Public Use
  Company Number: US-JNJFOC-20220925863

PATIENT
  Age: 3 Decade
  Sex: Female
  Weight: 75.818 kg

DRUGS (2)
  1. INFLIXIMAB [Suspect]
     Active Substance: INFLIXIMAB
     Indication: Inflammatory bowel disease
     Dosage: DISCONTINUED ON AN UNSPECIFIED DATE DUE TO UNKNOWN REASONS
     Route: 041
     Dates: start: 20151019
  2. ENTYVIO [Concomitant]
     Active Substance: VEDOLIZUMAB

REACTIONS (1)
  - Colitis ulcerative [Not Recovered/Not Resolved]

NARRATIVE: CASE EVENT DATE: 20211003
